FAERS Safety Report 10081935 (Version 1)
Quarter: 2014Q2

REPORT INFORMATION
  Report Type: Spontaneous
  Country: JP (occurrence: JP)
  Receive Date: 20140416
  Receipt Date: 20140416
  Transmission Date: 20141212
  Serious: Yes (Other)
  Sender: FDA-Public Use
  Company Number: JP-GLAXOSMITHKLINE-B0985213A

PATIENT
  Age: 5 Decade
  Sex: Male

DRUGS (5)
  1. RELENZA [Suspect]
     Indication: INFLUENZA
     Route: 055
     Dates: start: 201404
  2. MEDICON [Concomitant]
     Route: 048
  3. CELESTAMINE [Concomitant]
     Route: 048
  4. DEPAS [Concomitant]
     Route: 048
  5. UNKNOWN DRUG [Concomitant]
     Route: 065

REACTIONS (3)
  - Depressed level of consciousness [Unknown]
  - Dysarthria [Unknown]
  - Overdose [Unknown]
